FAERS Safety Report 5495922-7 (Version None)
Quarter: 2007Q4

REPORT INFORMATION
  Report Type: 
  Country: None (occurrence: None)
  Receive Date: 20071025
  Receipt Date: 20061114
  Transmission Date: 20080405
  Serious: No
  Sender: FDA-Public Use
  Company Number: A0627470A

PATIENT
  Age: 82 Year
  Sex: Female

DRUGS (8)
  1. ADVAIR DISKUS 100/50 [Suspect]
     Dosage: 1PUFF PER DAY
     Route: 055
  2. LIPITOR [Concomitant]
  3. ZETIA [Concomitant]
  4. PROTONIX [Concomitant]
  5. CARDIZEM [Concomitant]
  6. ASPIRIN [Concomitant]
  7. VITAMIN B50 [Concomitant]
  8. MAGNESIUM SULFATE [Concomitant]

REACTIONS (3)
  - CONSTIPATION [None]
  - DRUG ADMINISTRATION ERROR [None]
  - DYSPNOEA EXERTIONAL [None]
